FAERS Safety Report 19661718 (Version 1)
Quarter: 2021Q3

REPORT INFORMATION
  Report Type: Spontaneous
  Country: IT (occurrence: IT)
  Receive Date: 20210805
  Receipt Date: 20210805
  Transmission Date: 20211014
  Serious: Yes (Death, Hospitalization)
  Sender: FDA-Public Use
  Company Number: IT-LUPIN PHARMACEUTICALS INC.-2021-13746

PATIENT
  Age: 77 Year
  Sex: Male

DRUGS (8)
  1. AZITHROMYCIN ANHYDROUS. [Suspect]
     Active Substance: AZITHROMYCIN ANHYDROUS
     Indication: VASCULAR GRAFT INFECTION
  2. ETHAMBUTOL [Suspect]
     Active Substance: ETHAMBUTOL HYDROCHLORIDE
     Indication: VASCULAR GRAFT INFECTION
  3. AMIKACIN. [Suspect]
     Active Substance: AMIKACIN
     Indication: ATYPICAL MYCOBACTERIAL INFECTION
     Dosage: 500 MILLIGRAM, QOD
     Route: 042
     Dates: start: 2019
  4. ETHAMBUTOL [Suspect]
     Active Substance: ETHAMBUTOL HYDROCHLORIDE
     Indication: ATYPICAL MYCOBACTERIAL INFECTION
     Dosage: 1200 MILLIGRAM, QD
     Route: 048
     Dates: start: 2019
  5. AZITHROMYCIN ANHYDROUS. [Suspect]
     Active Substance: AZITHROMYCIN ANHYDROUS
     Indication: ATYPICAL MYCOBACTERIAL INFECTION
     Dosage: 500 MILLIGRAM, QD
     Route: 048
     Dates: start: 2019
  6. RIFAMPIN. [Suspect]
     Active Substance: RIFAMPIN
     Indication: VASCULAR GRAFT INFECTION
     Dosage: 600 MILLIGRAM, QD
     Route: 048
     Dates: start: 2019
  7. RIFAMPIN. [Suspect]
     Active Substance: RIFAMPIN
     Indication: ATYPICAL MYCOBACTERIAL INFECTION
  8. AMIKACIN. [Suspect]
     Active Substance: AMIKACIN
     Indication: VASCULAR GRAFT INFECTION

REACTIONS (1)
  - Drug ineffective [Unknown]

NARRATIVE: CASE EVENT DATE: 2019
